FAERS Safety Report 7480567-X (Version None)
Quarter: 2011Q2

REPORT INFORMATION
  Report Type: 
  Country: None (occurrence: None)
  Receive Date: 20110516
  Receipt Date: 20110317
  Transmission Date: 20111010
  Serious: No
  Sender: FDA-Public Use
  Company Number: US-BIOGENIDEC-2011BI017502

PATIENT
  Age: 42 Year
  Sex: Female

DRUGS (2)
  1. AVONEX [Suspect]
     Indication: MULTIPLE SCLEROSIS
     Route: 030
     Dates: start: 20090613
  2. AVONEX [Suspect]
     Route: 030
     Dates: start: 20040102, end: 20040225

REACTIONS (2)
  - DRUG INEFFECTIVE [None]
  - NEURALGIA [None]
